FAERS Safety Report 11718712 (Version 2)
Quarter: 2015Q4

REPORT INFORMATION
  Report Type: Spontaneous
  Country: US (occurrence: US)
  Receive Date: 20151110
  Receipt Date: 20151210
  Transmission Date: 20160304
  Serious: No
  Sender: FDA-Public Use
  Company Number: US-MERZ NORTH AMERICA, INC.-15MRZ-00615

PATIENT
  Age: 66 Year
  Sex: Female
  Weight: 61.29 kg

DRUGS (2)
  1. RADIESSE [Suspect]
     Active Substance: TRIBASIC CALCIUM PHOSPHATE
     Indication: SKIN COSMETIC PROCEDURE
     Route: 059
     Dates: start: 20151104, end: 20151104
  2. XEOMIN [Suspect]
     Active Substance: INCOBOTULINUMTOXINA
     Indication: SKIN COSMETIC PROCEDURE
     Route: 030
     Dates: start: 20151104, end: 20151104

REACTIONS (3)
  - Injection site haemorrhage [Unknown]
  - Eye swelling [Recovered/Resolved]
  - Headache [Not Recovered/Not Resolved]

NARRATIVE: CASE EVENT DATE: 20151106
